FAERS Safety Report 9128974 (Version 2)
Quarter: 2013Q2

REPORT INFORMATION
  Report Type: Spontaneous
  Country: GB (occurrence: GB)
  Receive Date: 20130228
  Receipt Date: 20130503
  Transmission Date: 20140414
  Serious: Yes (Other)
  Sender: FDA-Public Use
  Company Number: PHHY2013GB018002

PATIENT
  Age: 80 Year
  Sex: Male

DRUGS (9)
  1. GOSERELIN [Concomitant]
     Indication: PROSTATE CANCER
  2. BICALUTAMIDE [Concomitant]
     Indication: PROSTATE CANCER
  3. DIETHYLSTILBESTROL [Concomitant]
     Indication: PROSTATE CANCER
  4. CYPROTERONE [Concomitant]
     Indication: PROSTATE CANCER
  5. DOCETAXEL [Concomitant]
     Indication: PROSTATE CANCER
  6. MITOXANTRONE [Concomitant]
     Indication: PROSTATE CANCER
  7. CYCLOPHOSPHAMIDE [Concomitant]
     Indication: PROSTATE CANCER
  8. DEXAMETHASONE [Concomitant]
     Indication: PROSTATE CANCER
  9. SPIRONOLACTONE [Suspect]
     Indication: CARDIAC FAILURE CONGESTIVE

REACTIONS (3)
  - Prostate cancer [Unknown]
  - Bone pain [Recovered/Resolved]
  - Blood alkaline phosphatase increased [Recovering/Resolving]
